FAERS Safety Report 9414658 (Version 2)
Quarter: 2013Q4

REPORT INFORMATION
  Report Type: Spontaneous
  Country: CH (occurrence: CH)
  Receive Date: 20130723
  Receipt Date: 20131113
  Transmission Date: 20140711
  Serious: Yes (Hospitalization, Other)
  Sender: FDA-Public Use
  Company Number: CH-ELI_LILLY_AND_COMPANY-CH201305005875

PATIENT
  Sex: Male

DRUGS (3)
  1. EFIENT [Suspect]
     Indication: ACUTE MYOCARDIAL INFARCTION
     Dosage: 60 MG, QD
     Dates: start: 20110223, end: 20110223
  2. EFIENT [Suspect]
     Dosage: 10 MG, QD
     Route: 048
     Dates: start: 20110224, end: 20120223
  3. ASPIRIN [Concomitant]

REACTIONS (2)
  - Coronary artery stenosis [Unknown]
  - Arteriosclerosis [Recovering/Resolving]
